FAERS Safety Report 6504465-0 (Version None)
Quarter: 2009Q4

REPORT INFORMATION
  Report Type: 
  Country: None (occurrence: None)
  Receive Date: 20091215
  Receipt Date: 20091207
  Transmission Date: 20100525
  Serious: Yes (Hospitalization)
  Sender: FDA-Public Use
  Company Number: KV200900666

PATIENT
  Age: 61 Year
  Sex: Female

DRUGS (1)
  1. MORPHINE SULFATE [Suspect]
     Indication: MIGRAINE
     Dosage: 15 MG, TID, ORAL
     Route: 048
     Dates: start: 20081101, end: 20081101

REACTIONS (21)
  - ANXIETY [None]
  - APNOEA [None]
  - CHEST DISCOMFORT [None]
  - CONSTIPATION [None]
  - DEPRESSION [None]
  - DRUG DEPENDENCE [None]
  - DRUG INEFFECTIVE FOR UNAPPROVED INDICATION [None]
  - DRUG WITHDRAWAL SYNDROME [None]
  - DYSPNOEA [None]
  - GASTROINTESTINAL TOXICITY [None]
  - INSOMNIA [None]
  - IRRITABLE BOWEL SYNDROME [None]
  - NAUSEA [None]
  - OVERDOSE [None]
  - POLYP [None]
  - PRECANCEROUS CELLS PRESENT [None]
  - PRODUCT QUALITY ISSUE [None]
  - RESPIRATORY DEPRESSION [None]
  - STRESS [None]
  - VOMITING [None]
  - WEIGHT DECREASED [None]
